FAERS Safety Report 23991635 (Version 2)
Quarter: 2024Q3

REPORT INFORMATION
  Report Type: Spontaneous
  Country: US (occurrence: US)
  Receive Date: 20240619
  Receipt Date: 20240720
  Transmission Date: 20241017
  Serious: Yes (Other)
  Sender: NOVARTIS
  Company Number: US-002147023-NVSC2024US126536

PATIENT

DRUGS (1)
  1. KESIMPTA [Suspect]
     Active Substance: OFATUMUMAB
     Indication: Product used for unknown indication
     Dosage: UNK
     Route: 065

REACTIONS (8)
  - Multiple sclerosis [Unknown]
  - Lower respiratory tract infection [Unknown]
  - Blood immunoglobulin M decreased [Unknown]
  - Lymphocyte count decreased [Unknown]
  - Arthropathy [Unknown]
  - Feeling abnormal [Unknown]
  - Fatigue [Unknown]
  - Intentional dose omission [Unknown]
